FAERS Safety Report 5144953-5 (Version None)
Quarter: 2006Q4

REPORT INFORMATION
  Report Type: 
  Country: None (occurrence: None)
  Receive Date: 20061107
  Receipt Date: 20061106
  Transmission Date: 20070319
  Serious: Yes (Hospitalization)
  Sender: FDA-Public Use
  Company Number: US-GLAXOSMITHKLINE-A0626291A

PATIENT
  Age: 48 Year
  Sex: Female

DRUGS (7)
  1. NICODERM CQ [Suspect]
     Dosage: 21MG UNKNOWN
     Route: 062
     Dates: start: 20060917, end: 20060918
  2. ISOSORBIDE [Concomitant]
  3. SYNTHROID [Concomitant]
  4. METOPROLOL TARTRATE [Concomitant]
  5. LIPITOR [Concomitant]
  6. ZETIA [Concomitant]
  7. ASPIRIN [Concomitant]

REACTIONS (5)
  - ANGINA PECTORIS [None]
  - CHEST DISCOMFORT [None]
  - CHEST PAIN [None]
  - DYSPNOEA [None]
  - RESPIRATORY TRACT INFECTION [None]
